FAERS Safety Report 20545557 (Version 1)
Quarter: 2022Q1

REPORT INFORMATION
  Report Type: Spontaneous
  Country: US (occurrence: US)
  Receive Date: 20220303
  Receipt Date: 20220303
  Transmission Date: 20220423
  Serious: Yes (Other)
  Sender: FDA-Public Use
  Company Number: US-NOVARTISPH-NVSC2022US046118

PATIENT
  Sex: Male

DRUGS (4)
  1. ZOMETA [Suspect]
     Active Substance: ZOLEDRONIC ACID
     Indication: Bone pain
     Dosage: UNK
     Route: 065
  2. PEMBROLIZUMAB [Concomitant]
     Active Substance: PEMBROLIZUMAB
     Indication: Product used for unknown indication
     Dosage: UNK
     Route: 065
     Dates: start: 20210908, end: 20211021
  3. CABAZITAXEL [Concomitant]
     Active Substance: CABAZITAXEL
     Indication: Product used for unknown indication
     Dosage: UNK
     Route: 065
     Dates: start: 20211223
  4. RADIUM [Concomitant]
     Active Substance: RADIUM
     Indication: Product used for unknown indication
     Dosage: 223 X1 DOSE
     Route: 065
     Dates: start: 20211209

REACTIONS (4)
  - Prostate cancer metastatic [Unknown]
  - Second primary malignancy [Unknown]
  - Disease progression [Unknown]
  - Bone pain [Unknown]

NARRATIVE: CASE EVENT DATE: 20210831
